FAERS Safety Report 5450201-9 (Version None)
Quarter: 2007Q3

REPORT INFORMATION
  Report Type: 
  Country: None (occurrence: None)
  Receive Date: 20070912
  Receipt Date: 20070903
  Transmission Date: 20080115
  Serious: Yes (Other)
  Sender: FDA-Public Use
  Company Number: FR-SANOFI-SYNTHELABO-A02200702597

PATIENT
  Age: 40 Year
  Sex: Female

DRUGS (2)
  1. PLAVIX [Suspect]
     Indication: ARTERIAL THROMBOSIS LIMB
     Dosage: UNK
     Route: 048
  2. PLAVIX [Suspect]
     Indication: STENT PLACEMENT
     Dosage: UNK
     Route: 048

REACTIONS (1)
  - INFERTILITY FEMALE [None]
